FAERS Safety Report 5165386-1 (Version None)
Quarter: 2006Q4

REPORT INFORMATION
  Report Type: 
  Country: None (occurrence: None)
  Receive Date: 20061206
  Receipt Date: 20061125
  Transmission Date: 20070319
  Serious: Yes (Hospitalization)
  Sender: FDA-Public Use
  Company Number: US-AMGEN-US201415

PATIENT
  Sex: Male

DRUGS (1)
  1. ENBREL [Suspect]
     Indication: RHEUMATOID ARTHRITIS
     Route: 058
     Dates: start: 19990101

REACTIONS (10)
  - CHOLELITHIASIS [None]
  - CONDITION AGGRAVATED [None]
  - DIARRHOEA [None]
  - GALLBLADDER OPERATION [None]
  - KNEE ARTHROPLASTY [None]
  - NAUSEA [None]
  - PANCREATITIS [None]
  - RASH [None]
  - RHEUMATOID ARTHRITIS [None]
  - VOMITING [None]
